FAERS Safety Report 6912994-0 (Version None)
Quarter: 2010Q3

REPORT INFORMATION
  Report Type: 
  Country: None (occurrence: None)
  Receive Date: 20100806
  Receipt Date: 20090330
  Transmission Date: 20110219
  Serious: No
  Sender: FDA-Public Use
  Company Number: US-PFIZER INC-2008155901

PATIENT
  Sex: Male

DRUGS (2)
  1. LOPID [Suspect]
     Indication: BLOOD CHOLESTEROL ABNORMAL
     Dosage: UNK
     Dates: start: 19970101
  2. LOPID [Suspect]
     Indication: BLOOD TRIGLYCERIDES ABNORMAL

REACTIONS (1)
  - DRUG INEFFECTIVE [None]
